FAERS Safety Report 11420045 (Version 1)
Quarter: 2015Q3

REPORT INFORMATION
  Report Type: Spontaneous
  Country: US (occurrence: US)
  Receive Date: 20150826
  Receipt Date: 20150826
  Transmission Date: 20151125
  Serious: No
  Sender: FDA-Public Use
  Company Number: US-B.I. PHARMACEUTICALS,INC./RIDGEFIELD-2015-BI-44469BP

PATIENT
  Age: 59 Year
  Sex: Male
  Weight: 64 kg

DRUGS (1)
  1. COMBIVENT [Suspect]
     Active Substance: ALBUTEROL SULFATE\IPRATROPIUM BROMIDE
     Indication: CHRONIC OBSTRUCTIVE PULMONARY DISEASE
     Dosage: STRENGTH: 20 MCG / 100 MCG; DAILY DOSE: 120MCG/600 MCG
     Route: 055
     Dates: start: 2011

REACTIONS (2)
  - Product quality issue [Unknown]
  - Cough [Unknown]

NARRATIVE: CASE EVENT DATE: 20150813
